FAERS Safety Report 14149944 (Version 1)
Quarter: 2017Q4

REPORT INFORMATION
  Report Type: Report from Study
  Country: BR (occurrence: BR)
  Receive Date: 20171101
  Receipt Date: 20171101
  Transmission Date: 20180321
  Serious: Yes (Other)
  Sender: FDA-Public Use
  Company Number: PHHY2017BR159767

PATIENT
  Age: 63 Year
  Sex: Female
  Weight: 63 kg

DRUGS (5)
  1. METFORMIN [Suspect]
     Active Substance: METFORMIN HYDROCHLORIDE
     Dosage: UNK
     Route: 065
  2. AZUKON MR [Concomitant]
     Active Substance: GLICLAZIDE
     Indication: PRODUCT USED FOR UNKNOWN INDICATION
     Route: 065
  3. METFORMIN [Suspect]
     Active Substance: METFORMIN HYDROCHLORIDE
     Indication: DIABETES MELLITUS
     Dosage: 500 MG, QD
     Route: 048
  4. GALVUS [Suspect]
     Active Substance: VILDAGLIPTIN
     Indication: DIABETES MELLITUS
     Dosage: 50 MG, QD (AFTER LUNCH)
     Route: 048
  5. DIAMICRON [Concomitant]
     Active Substance: GLICLAZIDE
     Indication: DIABETES MELLITUS
     Dosage: 60 MG, BID (MORNING AND AT LUNCH)
     Route: 048

REACTIONS (9)
  - Malaise [Unknown]
  - Diabetes mellitus [Unknown]
  - Nervousness [Recovered/Resolved]
  - Dyspepsia [Unknown]
  - Tooth disorder [Unknown]
  - Fear [Not Recovered/Not Resolved]
  - Abdominal pain upper [Unknown]
  - Swelling face [Recovered/Resolved]
  - Blood glucose decreased [Unknown]

NARRATIVE: CASE EVENT DATE: 20171023
